FAERS Safety Report 13749153 (Version 1)
Quarter: 2017Q3

REPORT INFORMATION
  Report Type: Spontaneous
  Country: US (occurrence: US)
  Receive Date: 20170713
  Receipt Date: 20170713
  Transmission Date: 20171127
  Serious: Yes (Other)
  Sender: FDA-Public Use
  Company Number: None

PATIENT
  Age: 42 Year
  Sex: Female
  Weight: 57.6 kg

DRUGS (10)
  1. XTAMPZA [Suspect]
     Active Substance: OXYCODONE
     Indication: DEMYELINATION
     Dosage: ?          OTHER STRENGTH:MG;QUANTITY:60 CAPSULE(S);?
     Route: 048
  2. OXYCODONE [Concomitant]
     Active Substance: OXYCODONE
  3. BENADRYL [Concomitant]
     Active Substance: DIPHENHYDRAMINE HYDROCHLORIDE
  4. ACETAMINOPHEN. [Concomitant]
     Active Substance: ACETAMINOPHEN
  5. FOLATE [Concomitant]
     Active Substance: FOLATE SODIUM
  6. VIT B [Concomitant]
     Active Substance: VITAMIN B
  7. IBUPROFEN. [Concomitant]
     Active Substance: IBUPROFEN
  8. LEVOTHYROXINE. [Concomitant]
     Active Substance: LEVOTHYROXINE
  9. ALPRAZOLAM. [Concomitant]
     Active Substance: ALPRAZOLAM
  10. VITAMIN D [Concomitant]
     Active Substance: CHOLECALCIFEROL

REACTIONS (2)
  - Drug screen positive [None]
  - Suspected product contamination [None]

NARRATIVE: CASE EVENT DATE: 20170607
